FAERS Safety Report 7050356-9 (Version None)
Quarter: 2010Q4

REPORT INFORMATION
  Report Type: 
  Country: None (occurrence: None)
  Receive Date: 20101018
  Receipt Date: 20101006
  Transmission Date: 20110411
  Serious: Yes (Hospitalization)
  Sender: FDA-Public Use
  Company Number: US-PFIZER INC-2010105526

PATIENT
  Sex: Female
  Weight: 90 kg

DRUGS (7)
  1. SUTENT [Suspect]
     Indication: METASTATIC RENAL CELL CARCINOMA
     Dosage: 50 MG, 1X/DAY, 4 WEEKS ON AND 2 WEEKS OFF
     Dates: start: 20100730
  2. LEVOTHYROXINE [Suspect]
     Indication: HYPOTHYROIDISM
     Dosage: 150 UG, 1X/DAY
     Dates: start: 20100114
  3. MAXZIDE [Concomitant]
     Dosage: 37.5/25 DAILY
     Dates: end: 20100816
  4. DOCUSATE SODIUM [Concomitant]
     Dosage: 100 MG, 2X/DAY AS NEEDED
     Dates: start: 20100624
  5. ESZOPICLONE [Concomitant]
     Dosage: 1 MG, AT BEDTIME AS NEEDED
     Dates: start: 20100514
  6. ONDANSETRON [Concomitant]
     Dosage: 8 MG, EVERY 8 HOURS AS NEEDED
     Dates: start: 20100730
  7. PROCHLORPERAZINE [Concomitant]
     Dosage: 10 MG, EVERY 8 HOURS AS NEEDED
     Dates: start: 20100730

REACTIONS (8)
  - ASTHENIA [None]
  - BLOOD THYROID STIMULATING HORMONE DECREASED [None]
  - DECREASED APPETITE [None]
  - DIZZINESS [None]
  - FATIGUE [None]
  - HYPOTENSION [None]
  - PALPITATIONS [None]
  - STASIS SYNDROME [None]
